FAERS Safety Report 21465098 (Version 2)
Quarter: 2022Q4

REPORT INFORMATION
  Report Type: Report from Study
  Country: CA (occurrence: CA)
  Receive Date: 20221017
  Receipt Date: 20221108
  Transmission Date: 20230113
  Serious: Yes (Hospitalization, Other)
  Sender: FDA-Public Use
  Company Number: CA-GLAXOSMITHKLINE-CA2022AMR148256

PATIENT

DRUGS (1)
  1. MEPOLIZUMAB [Suspect]
     Active Substance: MEPOLIZUMAB
     Indication: Asthma
     Dosage: 100 MG, Z,EVERY 4 WEEKS
     Route: 058
     Dates: start: 20161215

REACTIONS (5)
  - Hospitalisation [Unknown]
  - Myasthenia gravis [Not Recovered/Not Resolved]
  - Asthenia [Unknown]
  - Gait inability [Unknown]
  - Wheelchair user [Unknown]

NARRATIVE: CASE EVENT DATE: 20221001
